FAERS Safety Report 17707680 (Version 2)
Quarter: 2020Q2

REPORT INFORMATION
  Report Type: Spontaneous
  Country: US (occurrence: US)
  Receive Date: 20200424
  Receipt Date: 20200527
  Transmission Date: 20200714
  Serious: Yes (Life-Threatening, Other)
  Sender: FDA-Public Use
  Company Number: US-NAPPMUNDI-USA-2020-0151972

PATIENT
  Age: 72 Year
  Sex: Male

DRUGS (3)
  1. OXYCONTIN [Suspect]
     Active Substance: OXYCODONE HYDROCHLORIDE
     Dosage: 80 MG, QID
     Route: 048
  2. OXYCONTIN [Suspect]
     Active Substance: OXYCODONE HYDROCHLORIDE
     Indication: SPINAL OPERATION
     Dosage: 80 MG, TID
     Route: 048
  3. MORPHINE                           /00036302/ [Suspect]
     Active Substance: MORPHINE
     Indication: SPINAL OPERATION
     Dosage: 20 MG, 4 TABLETS DAILY
     Route: 048

REACTIONS (12)
  - Drug dependence [Unknown]
  - Diabetes mellitus [Unknown]
  - Loss of consciousness [Unknown]
  - Unevaluable event [Unknown]
  - Prostate examination abnormal [Unknown]
  - Cardiac disorder [Unknown]
  - Hypertension [Unknown]
  - Tooth loss [Unknown]
  - Haemorrhoids [Unknown]
  - Blood pressure decreased [Unknown]
  - Off label use [Not Recovered/Not Resolved]
  - Near death experience [Unknown]

NARRATIVE: CASE EVENT DATE: 201911
